FAERS Safety Report 10048200 (Version 2)
Quarter: 2014Q2

REPORT INFORMATION
  Report Type: Spontaneous
  Country: US (occurrence: US)
  Receive Date: 20140331
  Receipt Date: 20140513
  Transmission Date: 20141212
  Serious: Yes (Other)
  Sender: FDA-Public Use
  Company Number: US-PFIZER INC-2014088747

PATIENT
  Sex: Female

DRUGS (1)
  1. LYRICA [Suspect]
     Indication: ANXIETY
     Dosage: 50 MG, 3X/DAY
     Dates: start: 2013

REACTIONS (3)
  - Weight increased [Unknown]
  - Local swelling [Unknown]
  - Drug effect incomplete [Unknown]
